FAERS Safety Report 11377139 (Version 1)
Quarter: 2015Q3

REPORT INFORMATION
  Report Type: Spontaneous
  Country: US (occurrence: US)
  Receive Date: 20150813
  Receipt Date: 20150813
  Transmission Date: 20151125
  Serious: No
  Sender: FDA-Public Use
  Company Number: US-GALDERMA-US14003086

PATIENT
  Age: 64 Year
  Sex: Female

DRUGS (6)
  1. AVEENO ACTIVE NATURAL FRAGRANCE FREE BODY WASH [Concomitant]
     Indication: THERAPEUTIC SKIN CARE TOPICAL
     Route: 061
  2. VASELINE PURE [Concomitant]
     Active Substance: PETROLATUM
     Indication: PROPHYLAXIS AGAINST SOLAR RADIATION
     Route: 061
  3. VORICONAZOLE. [Concomitant]
     Active Substance: VORICONAZOLE
     Indication: FUNGAL INFECTION
     Dosage: 400MG
     Route: 048
     Dates: start: 201401, end: 20140802
  4. METROGEL [Suspect]
     Active Substance: METRONIDAZOLE
     Indication: ROSACEA
     Dosage: 1%
     Route: 061
     Dates: start: 2006
  5. NEUTROGENA CLEANSER [Concomitant]
     Indication: THERAPEUTIC SKIN CARE TOPICAL
     Route: 061
  6. BLUE LIZARD SUNSCREEN SPF 30 [Concomitant]
     Indication: PROPHYLAXIS AGAINST SOLAR RADIATION
     Route: 061

REACTIONS (2)
  - Expired product administered [Not Recovered/Not Resolved]
  - Therapeutic response unexpected [Not Recovered/Not Resolved]

NARRATIVE: CASE EVENT DATE: 20140814
